FAERS Safety Report 11376612 (Version 1)
Quarter: 2015Q3

REPORT INFORMATION
  Report Type: Report from Study
  Country: AU (occurrence: AU)
  Receive Date: 20150813
  Receipt Date: 20150813
  Transmission Date: 20151125
  Serious: Yes (Other)
  Sender: FDA-Public Use
  Company Number: AU-TEVA-583442ISR

PATIENT
  Sex: Female

DRUGS (6)
  1. RIVOTRIL [Concomitant]
     Active Substance: CLONAZEPAM
  2. PARIET [Concomitant]
     Active Substance: RABEPRAZOLE SODIUM
  3. COPAXONE [Suspect]
     Active Substance: GLATIRAMER ACETATE
     Dosage: 20 MILLIGRAM DAILY; 20 MG/ML
     Route: 058
  4. LYRICA [Concomitant]
     Active Substance: PREGABALIN
  5. SEREPAX [Concomitant]
     Active Substance: OXAZEPAM
     Dosage: AS REQUIRED
  6. COPAXONE [Suspect]
     Active Substance: GLATIRAMER ACETATE
     Indication: MULTIPLE SCLEROSIS
     Dosage: 17.1429 MILLIGRAM DAILY; 40 MG/ML
     Route: 058

REACTIONS (2)
  - Diaphragmatic spasm [Unknown]
  - Secondary progressive multiple sclerosis [Unknown]
